FAERS Safety Report 13025012 (Version 1)
Quarter: 2016Q4

REPORT INFORMATION
  Report Type: Report from Study
  Country: US (occurrence: US)
  Receive Date: 20161213
  Receipt Date: 20161213
  Transmission Date: 20170207
  Serious: No
  Sender: FDA-Public Use
  Company Number: US-AMGEN-USASL2016174008

PATIENT
  Sex: Female

DRUGS (2)
  1. ENBREL [Suspect]
     Active Substance: ETANERCEPT
     Indication: RHEUMATOID ARTHRITIS
     Dosage: 50 MG, UNK
     Route: 065
  2. FUROSEMIDE. [Suspect]
     Active Substance: FUROSEMIDE
     Indication: PRODUCT USED FOR UNKNOWN INDICATION
     Dosage: UNK
     Route: 065

REACTIONS (12)
  - Viral infection [Unknown]
  - Arthropathy [Unknown]
  - Pain [Unknown]
  - Vascular insufficiency [Unknown]
  - Headache [Unknown]
  - Asthenia [Unknown]
  - Mobility decreased [Unknown]
  - Nausea [Unknown]
  - Upper respiratory tract infection [Unknown]
  - Hypersomnia [Unknown]
  - Obesity [Unknown]
  - Localised infection [Unknown]

NARRATIVE: CASE EVENT DATE: 2016
